FAERS Safety Report 6360539-9 (Version None)
Quarter: 2009Q3

REPORT INFORMATION
  Report Type: 
  Country: None (occurrence: None)
  Receive Date: 20090917
  Receipt Date: 20090914
  Transmission Date: 20100115
  Serious: Yes (Other)
  Sender: FDA-Public Use
  Company Number: US-JNJCH-2009024761

PATIENT
  Age: 79 Year
  Sex: Male
  Weight: 106.1 kg

DRUGS (18)
  1. ZYRTEC [Suspect]
     Indication: HYPERSENSITIVITY
     Route: 048
     Dates: start: 20090731, end: 20090909
  2. AMLODIPINE [Concomitant]
     Indication: BLOOD PRESSURE
     Dosage: TEXT:5 MG 1 DAILY
     Route: 065
  3. HYDROCHLOROTHIAZIDE [Concomitant]
     Indication: DRUG USE FOR UNKNOWN INDICATION
     Dosage: TEXT:12.5 MG 1 DAILY
     Route: 065
  4. CELEBREX [Concomitant]
     Indication: ARTHRITIS
     Dosage: TEXT:200 MG 1 DAILY
     Route: 065
  5. NEXIUM [Concomitant]
     Indication: DYSPEPSIA
     Dosage: TEXT:40 MG 1 DAILY
     Route: 065
  6. FLOMAX [Concomitant]
     Indication: BLADDER DISORDER
     Dosage: TEXT:0.4 MG 1 DAILY
     Route: 065
  7. COUMADIN [Concomitant]
     Indication: BLOOD DISORDER
     Dosage: TEXT:5 MG 1 DAILY
     Route: 065
  8. AMIODARONE HCL [Concomitant]
     Indication: CARDIAC DISORDER
     Dosage: TEXT:200 MG 2 DAILY
     Route: 065
  9. MULTI-VITAMINS [Concomitant]
     Indication: DRUG USE FOR UNKNOWN INDICATION
     Dosage: TEXT:1 DAILY
     Route: 065
  10. ASCORBIC ACID [Concomitant]
     Indication: DRUG USE FOR UNKNOWN INDICATION
     Dosage: TEXT:500 MG 1 DAILY
     Route: 065
  11. MULTIVITAMIN [Concomitant]
     Indication: DRUG USE FOR UNKNOWN INDICATION
     Dosage: TEXT:1 DAILY
     Route: 065
  12. CALCIUM WITH VITAMIN D [Concomitant]
     Indication: DRUG USE FOR UNKNOWN INDICATION
     Dosage: TEXT:2 DAILY
     Route: 065
  13. VITAMIN B-12 [Concomitant]
     Indication: DRUG USE FOR UNKNOWN INDICATION
     Dosage: TEXT:2000 MG DAILY
     Route: 065
  14. SUPER VITAMIN B COMPLEX [Concomitant]
     Indication: DRUG USE FOR UNKNOWN INDICATION
     Dosage: TEXT:1 DAILY
     Route: 065
  15. ALOES [Concomitant]
     Indication: DRUG USE FOR UNKNOWN INDICATION
     Dosage: TEXT:25 MG 2 DAILY
     Route: 065
  16. GLUCOSAMINE [Concomitant]
     Indication: DRUG USE FOR UNKNOWN INDICATION
     Dosage: TEXT:1000 MG 1 DAILY
     Route: 065
  17. SAW PALMETTO [Concomitant]
     Indication: DRUG USE FOR UNKNOWN INDICATION
     Dosage: TEXT:400 MG 2 DAILY
     Route: 065
  18. CITRUCEL [Concomitant]
     Indication: DRUG USE FOR UNKNOWN INDICATION
     Dosage: TEXT:1 CHEWABLE DAILY
     Route: 048

REACTIONS (4)
  - BLADDER DISORDER [None]
  - DYSURIA [None]
  - PROSTATOMEGALY [None]
  - WRONG DRUG ADMINISTERED [None]
